FAERS Safety Report 4740278-8 (Version None)
Quarter: 2005Q3

REPORT INFORMATION
  Report Type: 
  Country: None (occurrence: None)
  Receive Date: 20050809
  Receipt Date: 20050809
  Transmission Date: 20060218
  Serious: No
  Sender: FDA-Public Use
  Company Number: None

PATIENT
  Age: 69 Year
  Sex: Male
  Weight: 85 kg

DRUGS (2)
  1. EZETIMIBE 10MG SCHERING [Suspect]
     Indication: HYPERCHOLESTEROLAEMIA
     Dosage: 10MG DAILY ORAL
     Route: 048
     Dates: start: 20050620, end: 20050628
  2. SIMVASTATIN [Concomitant]

REACTIONS (2)
  - ASTHENIA [None]
  - MYALGIA [None]
